FAERS Safety Report 12937540 (Version 1)
Quarter: 2016Q4

REPORT INFORMATION
  Report Type: Spontaneous
  Country: AU (occurrence: AU)
  Receive Date: 20161114
  Receipt Date: 20161114
  Transmission Date: 20170207
  Serious: Yes (Hospitalization)
  Sender: FDA-Public Use
  Company Number: AU-BAXTER-2016BAX056545

PATIENT
  Age: 49 Year
  Sex: Female

DRUGS (5)
  1. BAXTER 5% GLUCOSE 12.5G_250ML INJECTION BP BAG AHB0062 [Suspect]
     Active Substance: DEXTROSE
     Indication: MEDICATION DILUTION
     Dosage: PORT-A-CATH, Q2/S2
     Route: 042
     Dates: start: 20160829, end: 20161031
  2. DEXAMETHASONE. [Suspect]
     Active Substance: DEXAMETHASONE
     Indication: ANTIEMETIC SUPPORTIVE CARE
     Dosage: DAY 1, 2 AND 3 PRE AND POST CHEMOTHERAPY
     Route: 048
     Dates: start: 20160829, end: 20161031
  3. PALONOSETRON [Suspect]
     Active Substance: PALONOSETRON
     Indication: ANTIEMETIC SUPPORTIVE CARE
     Dosage: DAY 1
     Route: 065
     Dates: start: 20160829, end: 20161031
  4. CAPECITABINE. [Suspect]
     Active Substance: CAPECITABINE
     Indication: COLORECTAL CANCER METASTATIC
     Dosage: DAY 1-14
     Route: 048
     Dates: start: 20160829, end: 20161031
  5. OXALIPLATIN (DBL) [Suspect]
     Active Substance: OXALIPLATIN
     Indication: COLORECTAL CANCER METASTATIC
     Dosage: PORT-A-CATH, Q2/S2
     Route: 042
     Dates: start: 20160829, end: 20161031

REACTIONS (4)
  - Ataxia [Recovering/Resolving]
  - Muscle twitching [Recovering/Resolving]
  - Dystonia [Recovering/Resolving]
  - Irritability [Unknown]

NARRATIVE: CASE EVENT DATE: 20161031
